FAERS Safety Report 8379285-5 (Version None)
Quarter: 2012Q2

REPORT INFORMATION
  Report Type: 
  Country: None (occurrence: None)
  Receive Date: 20120523
  Receipt Date: 20120515
  Transmission Date: 20120825
  Serious: Yes (Other)
  Sender: FDA-Public Use
  Company Number: US-US-EMD SERONO, INC.-7133477

PATIENT
  Sex: Male
  Weight: 105 kg

DRUGS (5)
  1. REBIF [Suspect]
     Indication: MULTIPLE SCLEROSIS
     Route: 058
     Dates: start: 20100503, end: 20120101
  2. REBIF [Suspect]
     Route: 058
     Dates: start: 20120101
  3. LISINOPRIL [Concomitant]
     Indication: HYPERTENSION
  4. UNSPECIFIED WATER PILL [Concomitant]
     Indication: HYPERTENSION
  5. DILTZAC [Concomitant]
     Indication: HYPERTENSION

REACTIONS (2)
  - INJECTION SITE ERYTHEMA [None]
  - LIP AND/OR ORAL CAVITY CANCER [None]
